FAERS Safety Report 10780402 (Version 1)
Quarter: 2015Q1

REPORT INFORMATION
  Report Type: Spontaneous
  Country: US (occurrence: US)
  Receive Date: 20150210
  Receipt Date: 20150210
  Transmission Date: 20150721
  Serious: No
  Sender: FDA-Public Use
  Company Number: US-GLAXOSMITHKLINE-A1084432A

PATIENT

DRUGS (1)
  1. TYKERB [Suspect]
     Active Substance: LAPATINIB DITOSYLATE
     Indication: BREAST CANCER

REACTIONS (4)
  - Dyspepsia [Unknown]
  - Abdominal distension [Unknown]
  - Anorectal discomfort [Unknown]
  - Palpitations [Unknown]
